FAERS Safety Report 24317623 (Version 1)
Quarter: 2024Q3

REPORT INFORMATION
  Report Type: Spontaneous
  Country: US (occurrence: US)
  Receive Date: 20240913
  Receipt Date: 20240913
  Transmission Date: 20241017
  Serious: No
  Sender: PFIZER
  Company Number: US-PFIZER INC-202400253344

PATIENT
  Age: 66 Year
  Sex: Female
  Weight: 81.6 kg

DRUGS (3)
  1. TRASTUZUMAB [Suspect]
     Active Substance: TRASTUZUMAB
     Dosage: Q21D
     Route: 042
     Dates: start: 20240522
  2. TUKYSA [Suspect]
     Active Substance: TUCATINIB
     Dosage: 150 MG, 2X/DAY
     Route: 048
     Dates: start: 20240522
  3. CAPECITABINE [Suspect]
     Active Substance: CAPECITABINE
     Dosage: 1000 MG/M2 = 2000MG, 2X/DAY
     Route: 048
     Dates: start: 20240522

REACTIONS (4)
  - Oedema peripheral [Unknown]
  - Pain in extremity [Unknown]
  - Gait disturbance [Unknown]
  - Swelling [Unknown]
